FAERS Safety Report 14715161 (Version 1)
Quarter: 2018Q2

REPORT INFORMATION
  Report Type: Report from Study
  Country: KR (occurrence: KR)
  Receive Date: 20180404
  Receipt Date: 20180404
  Transmission Date: 20180711
  Serious: Yes (Other)
  Sender: FDA-Public Use
  Company Number: KR-TEVA-2018-KR-877284

PATIENT
  Age: 1 Year
  Sex: Female

DRUGS (11)
  1. PREDNISOLONE. [Suspect]
     Active Substance: PREDNISOLONE
     Indication: ACUTE LYMPHOCYTIC LEUKAEMIA
     Dosage: 40 MG/M2 DAILY; EACH CYCLE OF THREE MONTHS DURATION.
     Route: 048
  2. CYTARABINE. [Suspect]
     Active Substance: CYTARABINE
     Indication: ACUTE LYMPHOCYTIC LEUKAEMIA
     Dosage: 2 G/M2/DOSE EVERY 12 HOURS ON DAY (-7) TO DAY (-4).
     Route: 065
  3. CARMUSTINE [Suspect]
     Active Substance: CARMUSTINE
     Indication: ACUTE LYMPHOCYTIC LEUKAEMIA
     Dosage: 200 MG/M2 DAILY; ON DAY (-3).
     Route: 065
  4. CYCLOPHOSPHAMIDE. [Suspect]
     Active Substance: CYCLOPHOSPHAMIDE
     Indication: ACUTE LYMPHOCYTIC LEUKAEMIA
     Dosage: 50 MG/KG DAILY; ON DAYS (-2) AND (-1).
     Route: 065
  5. 6-MERCAPTOPURINE [Suspect]
     Active Substance: MERCAPTOPURINE
     Indication: ACUTE LYMPHOCYTIC LEUKAEMIA
     Dosage: 25 MG/M2 DAILY; EACH CYCLE OF THREE MONTHS DURATION.
     Route: 065
  6. ETOPOSIDE. [Suspect]
     Active Substance: ETOPOSIDE
     Indication: ACUTE LYMPHOCYTIC LEUKAEMIA
     Dosage: 70 MG/M2 DAILY; ON DAY 0 TO DAY 3.
     Route: 065
  7. ETOPOSIDE. [Suspect]
     Active Substance: ETOPOSIDE
     Indication: ACUTE LYMPHOCYTIC LEUKAEMIA
     Dosage: 400 MG/M2 DAILY; ON DAYS (-7) TO (-4).
     Route: 065
  8. CARMUSTINE [Suspect]
     Active Substance: CARMUSTINE
     Indication: ACUTE LYMPHOCYTIC LEUKAEMIA
     Dosage: 250 MG/M2 DAILY; ON DAYS (-8).
     Route: 065
  9. METHOTREXATE. [Suspect]
     Active Substance: METHOTREXATE
     Indication: ACUTE LYMPHOCYTIC LEUKAEMIA
     Dosage: EACH CYCLE OF THREE MONTHS DURATION.
     Route: 048
  10. VINCRISTINE [Suspect]
     Active Substance: VINCRISTINE
     Indication: ACUTE LYMPHOCYTIC LEUKAEMIA
     Dosage: 1.5 MG/M2; EACH CYCLE OF THREE MONTHS DURATION.
     Route: 065
  11. CYTARABINE. [Suspect]
     Active Substance: CYTARABINE
     Indication: ACUTE LYMPHOCYTIC LEUKAEMIA
     Dosage: ONE DOSE EACH ON DAY 0 AND DAY 2 AND TWO DOSES ON DAY 1.
     Route: 065

REACTIONS (6)
  - Aspartate aminotransferase increased [Recovered/Resolved]
  - Neutrophil count decreased [Recovered/Resolved]
  - Febrile neutropenia [Recovered/Resolved]
  - Alanine aminotransferase increased [Recovered/Resolved]
  - Device related infection [Recovered/Resolved]
  - Platelet count decreased [Recovered/Resolved]
